FAERS Safety Report 7225136-1 (Version None)
Quarter: 2011Q1

REPORT INFORMATION
  Report Type: 
  Country: None (occurrence: None)
  Receive Date: 20110113
  Receipt Date: 20110104
  Transmission Date: 20110831
  Serious: Yes (Life-Threatening, Other)
  Sender: FDA-Public Use
  Company Number: A0899547A

PATIENT
  Age: 42 Year
  Sex: Female
  Weight: 67.3 kg

DRUGS (2)
  1. ADVAIR HFA [Suspect]
     Indication: ASTHMA
     Dosage: 1PUFF TWICE PER DAY
     Route: 055
  2. ALBUTEROL [Suspect]
     Route: 065

REACTIONS (5)
  - RESPIRATORY DISTRESS [None]
  - RESPIRATORY RATE INCREASED [None]
  - DRUG RESISTANCE [None]
  - DYSPNOEA [None]
  - WHEEZING [None]
